FAERS Safety Report 16551351 (Version 1)
Quarter: 2019Q3

REPORT INFORMATION
  Report Type: Spontaneous
  Country: US (occurrence: US)
  Receive Date: 20190529
  Receipt Date: 20190529
  Transmission Date: 20191004
  Serious: Yes (Hospitalization)
  Sender: FDA-Public Use
  Company Number: None

PATIENT
  Age: 45 Year
  Sex: Male

DRUGS (20)
  1. LORAZEPAM. [Concomitant]
     Active Substance: LORAZEPAM
  2. FISH OIL [Concomitant]
     Active Substance: FISH OIL
  3. SIMETHICONE (DIMETHICONE) [Concomitant]
     Active Substance: DIMETHICONE
  4. KETOCONAZOLE. [Concomitant]
     Active Substance: KETOCONAZOLE
  5. IBUPROFEN. [Concomitant]
     Active Substance: IBUPROFEN
  6. PROBIOTIC [Concomitant]
     Active Substance: PROBIOTICS NOS
  7. DIPHENHYDRAMINE. [Concomitant]
     Active Substance: DIPHENHYDRAMINE
  8. ONDANSETRON [Suspect]
     Active Substance: ONDANSETRON
  9. MULTIVITAMINS [Concomitant]
     Active Substance: VITAMINS
  10. DEXAMETHASONE. [Concomitant]
     Active Substance: DEXAMETHASONE
  11. VITAMIN C [Concomitant]
     Active Substance: ASCORBIC ACID
  12. TAFINLAR [Suspect]
     Active Substance: DABRAFENIB MESYLATE
     Indication: MALIGNANT MELANOMA
     Route: 048
  13. MEKINIST [Suspect]
     Active Substance: TRAMETINIB DIMETHYL SULFOXIDE
     Indication: MALIGNANT MELANOMA
     Route: 048
  14. TUMERIC [Concomitant]
     Active Substance: HERBALS\TURMERIC
  15. MIRTAZAPINE. [Concomitant]
     Active Substance: MIRTAZAPINE
  16. TYLENOL [Concomitant]
     Active Substance: ACETAMINOPHEN
  17. YERVOY [Concomitant]
     Active Substance: IPILIMUMAB
  18. VITAMIN D [Concomitant]
     Active Substance: VITAMIN D NOS
  19. SM LOPERAMIDE [Concomitant]
  20. DIAZEPAM. [Concomitant]
     Active Substance: DIAZEPAM

REACTIONS (2)
  - Hypersensitivity [None]
  - Drug hypersensitivity [None]
